FAERS Safety Report 9380188 (Version 1)
Quarter: 2013Q3

REPORT INFORMATION
  Report Type: Report from Study
  Country: DE (occurrence: DE)
  Receive Date: 20130702
  Receipt Date: 20130702
  Transmission Date: 20140515
  Serious: Yes (Hospitalization)
  Sender: FDA-Public Use
  Company Number: DE-TEVA-416530USA

PATIENT
  Age: 68 Year
  Sex: Male

DRUGS (9)
  1. BENDAMUSTINE [Suspect]
     Indication: PLASMA CELL MYELOMA
     Dosage: CYCLE 1
     Dates: start: 20121112, end: 20121113
  2. BENDAMUSTINE [Suspect]
     Dosage: CYCLE 2
     Dates: start: 20130305, end: 20130306
  3. BENDAMUSTINE [Suspect]
     Dosage: CYCLE 3
     Dates: start: 20130409, end: 20130409
  4. PREDNISOLON [Suspect]
     Indication: PLASMA CELL MYELOMA
     Dosage: CYCLE 1
     Dates: start: 20121112, end: 20121113
  5. PREDNISOLON [Suspect]
     Dosage: CYCLE 2
     Dates: start: 20130305, end: 20130306
  6. PREDNISOLON [Suspect]
     Dosage: CYCLE 3
     Dates: start: 20130409, end: 20130409
  7. PREDNISOLON [Suspect]
     Dates: start: 20121106, end: 20121109
  8. METRONIDAZOLE [Concomitant]
     Dates: start: 201304
  9. ENOXAPARIN SODIUM [Concomitant]
     Dates: start: 20100304

REACTIONS (2)
  - Upper gastrointestinal haemorrhage [Unknown]
  - Sepsis [Recovered/Resolved]
